FAERS Safety Report 10148914 (Version 1)
Quarter: 2014Q2

REPORT INFORMATION
  Report Type: Spontaneous
  Country: US (occurrence: US)
  Receive Date: 20140502
  Receipt Date: 20140502
  Transmission Date: 20141212
  Serious: Yes (Hospitalization)
  Sender: FDA-Public Use
  Company Number: US-BIOGENIDEC-2014BI039222

PATIENT
  Age: 36 Year
  Sex: Female

DRUGS (1)
  1. AVONEX [Suspect]
     Indication: MULTIPLE SCLEROSIS
     Route: 030
     Dates: start: 1997

REACTIONS (8)
  - Hypoaesthesia [Recovered/Resolved]
  - Vision blurred [Recovered/Resolved]
  - Blindness [Recovered/Resolved]
  - Paraesthesia [Recovered/Resolved]
  - Speech disorder [Unknown]
  - Hypoaesthesia oral [Unknown]
  - VIIth nerve paralysis [Unknown]
  - Multiple sclerosis [Recovered/Resolved]
